FAERS Safety Report 22855085 (Version 3)
Quarter: 2024Q1

REPORT INFORMATION
  Report Type: Report from Study
  Country: US (occurrence: US)
  Receive Date: 20230823
  Receipt Date: 20240125
  Transmission Date: 20240409
  Serious: Yes (Hospitalization, Other)
  Sender: FDA-Public Use
  Company Number: US-ABBVIE-5376333

PATIENT
  Sex: Female

DRUGS (2)
  1. CREON [Suspect]
     Active Substance: PANCRELIPASE AMYLASE\PANCRELIPASE LIPASE\PANCRELIPASE PROTEASE
     Indication: Pancreatic failure
     Dosage: FREQUENCY TEXT: 3 CAPS WITH MEALS AND 2 CAPS SNACKS
     Route: 048
     Dates: start: 202203
  2. CREON [Suspect]
     Active Substance: PANCRELIPASE AMYLASE\PANCRELIPASE LIPASE\PANCRELIPASE PROTEASE
     Indication: Pancreatic failure
     Dosage: FREQUENCY TEXT : TAKES 5 TABLETS PER MEAL AND 3 WITH SNACKS.
     Route: 048

REACTIONS (21)
  - Seizure [Unknown]
  - Scratch [Unknown]
  - Epilepsy [Unknown]
  - Joint range of motion decreased [Not Recovered/Not Resolved]
  - Pancreatic failure [Unknown]
  - Wrist fracture [Unknown]
  - Surgery [Recovering/Resolving]
  - Head discomfort [Unknown]
  - Thyroidectomy [Unknown]
  - Arthralgia [Not Recovered/Not Resolved]
  - Loss of consciousness [Recovered/Resolved]
  - Arthralgia [Not Recovered/Not Resolved]
  - Fall [Recovered/Resolved]
  - Hysterectomy [Unknown]
  - Weight decreased [Not Recovered/Not Resolved]
  - Wound [Unknown]
  - Nausea [Not Recovered/Not Resolved]
  - Generalised tonic-clonic seizure [Unknown]
  - Lip injury [Unknown]
  - Knee operation [Recovering/Resolving]
  - Arthropathy [Not Recovered/Not Resolved]

NARRATIVE: CASE EVENT DATE: 20220101
